FAERS Safety Report 17218475 (Version 1)
Quarter: 2019Q4

REPORT INFORMATION
  Report Type: Spontaneous
  Country: GB (occurrence: GB)
  Receive Date: 20191231
  Receipt Date: 20191231
  Transmission Date: 20200122
  Serious: Yes (Other)
  Sender: FDA-Public Use
  Company Number: GB-STRIDES ARCOLAB LIMITED-2019SP013302

PATIENT
  Age: 23 Year
  Sex: Female

DRUGS (11)
  1. HYDROXYCHLOROQUINE [Suspect]
     Active Substance: HYDROXYCHLOROQUINE
     Indication: SYSTEMIC LUPUS ERYTHEMATOSUS
     Dosage: UNK
     Route: 065
     Dates: start: 2011
  2. PREDNISOLONE. [Suspect]
     Active Substance: PREDNISOLONE
     Indication: SYSTEMIC LUPUS ERYTHEMATOSUS
     Dosage: 7.5 MILLIGRAM PER DAY
     Route: 065
  3. AZATHIOPRINE. [Suspect]
     Active Substance: AZATHIOPRINE
     Dosage: 150 MILLIGRAM
     Route: 065
     Dates: end: 2017
  4. MYCOPHENOLATE MOFETIL. [Suspect]
     Active Substance: MYCOPHENOLATE MOFETIL
     Indication: SYSTEMIC LUPUS ERYTHEMATOSUS
     Dosage: UNK
     Route: 065
     Dates: start: 2017, end: 2018
  5. RITUXIMAB. [Suspect]
     Active Substance: RITUXIMAB
     Indication: PLEURISY
     Dosage: UNK
     Route: 065
     Dates: start: 201610
  6. PREDNISOLONE. [Suspect]
     Active Substance: PREDNISOLONE
     Indication: CENTRAL NERVOUS SYSTEM VASCULITIS
     Dosage: UNK
     Route: 065
     Dates: start: 2011
  7. RITUXIMAB. [Suspect]
     Active Substance: RITUXIMAB
     Indication: IMMUNE THROMBOCYTOPENIC PURPURA
     Dosage: 375 MG/M2 IN 2 DOSES 14 DAYS APART
     Route: 065
     Dates: start: 201510, end: 2015
  8. PREDNISOLONE. [Suspect]
     Active Substance: PREDNISOLONE
     Indication: CENTRAL NERVOUS SYSTEM LUPUS
     Dosage: 40 MILLIGRAM
     Route: 048
  9. PREDNISOLONE. [Suspect]
     Active Substance: PREDNISOLONE
     Dosage: WEANED BY 5 MG PER WEEK TO 5 MG DAILY
     Route: 065
  10. AZATHIOPRINE. [Suspect]
     Active Substance: AZATHIOPRINE
     Indication: SYSTEMIC LUPUS ERYTHEMATOSUS
     Dosage: UNK
     Route: 065
     Dates: start: 2011
  11. RITUXIMAB. [Suspect]
     Active Substance: RITUXIMAB
     Dosage: 1 G INFUSION IN 2 DOSES 14 DAYS APART
     Route: 065

REACTIONS (18)
  - Speech disorder [Recovered/Resolved]
  - Pyrexia [Recovered/Resolved]
  - Confusional state [Recovered/Resolved]
  - Headache [Recovered/Resolved]
  - Cerebral ischaemia [Recovered/Resolved]
  - Decorticate posture [Recovered/Resolved]
  - Viral upper respiratory tract infection [Unknown]
  - Off label use [Unknown]
  - Central nervous system lupus [Recovered/Resolved]
  - Meningitis enteroviral [Recovered/Resolved]
  - Vomiting [Recovered/Resolved]
  - Depressed level of consciousness [Recovered/Resolved]
  - Behaviour disorder [Recovered/Resolved]
  - Infection [Recovered/Resolved]
  - Central nervous system vasculitis [Recovered/Resolved]
  - Liver function test abnormal [Recovered/Resolved]
  - Neck pain [Recovered/Resolved]
  - Photophobia [Recovered/Resolved]

NARRATIVE: CASE EVENT DATE: 201707
